FAERS Safety Report 25808185 (Version 5)
Quarter: 2025Q4

REPORT INFORMATION
  Report Type: Spontaneous
  Country: CA (occurrence: CA)
  Receive Date: 20250916
  Receipt Date: 20251106
  Transmission Date: 20260118
  Serious: Yes (Other)
  Sender: PFIZER
  Company Number: CA-PFIZER INC-202500159742

PATIENT
  Age: 60 Year
  Sex: Female

DRUGS (7)
  1. RUXIENCE [Suspect]
     Active Substance: RITUXIMAB-PVVR
     Indication: Rheumatoid arthritis
     Dosage: 1000 MG, CYCLIC (ONE INFUSION Q6 MONTHS)
     Route: 042
     Dates: start: 20220609, end: 20221212
  2. RUXIENCE [Suspect]
     Active Substance: RITUXIMAB-PVVR
     Dosage: 1000 MG, CYCLIC,  EVERY 6 MONTHS
     Route: 042
     Dates: start: 20230831, end: 20240301
  3. RUXIENCE [Suspect]
     Active Substance: RITUXIMAB-PVVR
     Dosage: 1000 MG, CYCLIC,  EVERY 6 MONTHS
     Route: 042
     Dates: start: 20240903
  4. RUXIENCE [Suspect]
     Active Substance: RITUXIMAB-PVVR
     Dosage: 1000 MG, CYCLIC, EVERY 6 MONTHS
     Route: 042
     Dates: start: 20250304
  5. RUXIENCE [Suspect]
     Active Substance: RITUXIMAB-PVVR
     Dosage: 1000 MG, 30 WEEKS AND 6 DAYS (SUPPOSED TO BE 6 MONTHS AFTER THE PREVIOUS ONE)
     Route: 042
     Dates: start: 20251006
  6. METHOTREXATE [Concomitant]
     Active Substance: METHOTREXATE
     Indication: Rheumatoid arthritis
     Dosage: 1 DF, WEEKLY (ONCE A WEEK)
     Route: 058
  7. SYNTHROID [Concomitant]
     Active Substance: LEVOTHYROXINE SODIUM
     Dosage: UNK

REACTIONS (2)
  - Gallbladder disorder [Recovering/Resolving]
  - Condition aggravated [Unknown]

NARRATIVE: CASE EVENT DATE: 20250101
